FAERS Safety Report 8855391 (Version 2)
Quarter: 2013Q4

REPORT INFORMATION
  Report Type: Spontaneous
  Country: US (occurrence: US)
  Receive Date: 20121023
  Receipt Date: 20131204
  Transmission Date: 20140711
  Serious: Yes (Hospitalization, Other)
  Sender: FDA-Public Use
  Company Number: US-AMGEN-USASP2012057227

PATIENT
  Age: 59 Year
  Sex: Male

DRUGS (1)
  1. ENBREL [Suspect]
     Indication: PSORIASIS
     Dosage: 50 MG, QWK
     Route: 065
     Dates: start: 20120601

REACTIONS (5)
  - Umbilical hernia [Recovered/Resolved]
  - Prostate cancer [Not Recovered/Not Resolved]
  - Sexual dysfunction [Unknown]
  - Incontinence [Unknown]
  - Psoriasis [Not Recovered/Not Resolved]
